FAERS Safety Report 18798271 (Version 3)
Quarter: 2022Q1

REPORT INFORMATION
  Report Type: Report from Study
  Country: US (occurrence: US)
  Receive Date: 20210128
  Receipt Date: 20220113
  Transmission Date: 20220423
  Serious: Yes (Death, Hospitalization)
  Sender: FDA-Public Use
  Company Number: US-TAIHO ONCOLOGY INC-EU-2021-00052

PATIENT
  Age: 63 Year
  Sex: Male
  Weight: 69.462 kg

DRUGS (9)
  1. LONSURF [Suspect]
     Active Substance: TIPIRACIL HYDROCHLORIDE\TRIFLURIDINE
     Indication: Colon cancer
     Dosage: CYCLE NUMBER UNKNOWN
     Route: 048
     Dates: start: 20201111
  2. STIVARGA [Suspect]
     Active Substance: REGORAFENIB
     Indication: Product used for unknown indication
     Route: 065
     Dates: start: 202012
  3. LACTULOSE [Concomitant]
     Active Substance: LACTULOSE
     Dosage: 10 G/15 ML SOLUTION
  4. GABAPENTIN [Concomitant]
     Active Substance: GABAPENTIN
  5. ZOFRAN [Concomitant]
     Active Substance: ONDANSETRON HYDROCHLORIDE
  6. MS CONTIN [Concomitant]
     Active Substance: MORPHINE SULFATE
  7. OXYCODONE HYDROCHLORIDE [Concomitant]
     Active Substance: OXYCODONE HYDROCHLORIDE
  8. ENEMA (SODIUM PHOSPHATE, DIBASIC\SODIUM PHOSPHATE, MONOBASIC) [Concomitant]
     Active Substance: SODIUM PHOSPHATE, DIBASIC\SODIUM PHOSPHATE, MONOBASIC
     Dosage: 19G-7G/118
  9. OXYCODONE [Concomitant]
     Active Substance: OXYCODONE

REACTIONS (7)
  - Death [Fatal]
  - Spinal pain [Unknown]
  - Pain in extremity [Unknown]
  - Burning sensation [Unknown]
  - Pain [Unknown]
  - Nausea [Unknown]
  - Malaise [Unknown]

NARRATIVE: CASE EVENT DATE: 20210319
